FAERS Safety Report 24361724 (Version 1)
Quarter: 2024Q3

REPORT INFORMATION
  Report Type: Spontaneous
  Country: US (occurrence: None)
  Receive Date: 20240925
  Receipt Date: 20240925
  Transmission Date: 20241016
  Serious: Yes (Hospitalization)
  Sender: Public
  Company Number: None

PATIENT
  Age: 80 Year
  Sex: Male
  Weight: 75.3 kg

DRUGS (2)
  1. GEMCITABINE HYDROCHLORIDE [Suspect]
     Active Substance: GEMCITABINE HYDROCHLORIDE
     Dates: end: 20240103
  2. PACLITAXEL [Suspect]
     Active Substance: PACLITAXEL
     Dates: end: 20240115

REACTIONS (4)
  - Confusional state [None]
  - Muscular weakness [None]
  - Speech disorder [None]
  - Fatigue [None]

NARRATIVE: CASE EVENT DATE: 20231212
